FAERS Safety Report 7559576-8 (Version None)
Quarter: 2011Q2

REPORT INFORMATION
  Report Type: 
  Country: None (occurrence: None)
  Receive Date: 20110621
  Receipt Date: 20110615
  Transmission Date: 20111010
  Serious: Yes (Hospitalization)
  Sender: FDA-Public Use
  Company Number: JP-SANOFI-AVENTIS-2011SA033505

PATIENT
  Age: 39 Year
  Sex: Female
  Weight: 62.2 kg

DRUGS (4)
  1. HUMALOG [Suspect]
     Indication: TYPE 2 DIABETES MELLITUS
     Route: 065
     Dates: start: 20090813, end: 20091209
  2. LANTUS [Suspect]
     Indication: TYPE 2 DIABETES MELLITUS
     Route: 065
     Dates: start: 20090813, end: 20091209
  3. HUMALOG [Suspect]
     Dosage: OVERDOSE DOSE:2100 UNIT(S)
     Route: 065
     Dates: start: 20100101, end: 20100101
  4. LANTUS [Suspect]
     Dosage: OVERDOSE THERAPY DOSE:900 UNIT(S)
     Route: 065
     Dates: start: 20100101, end: 20100101

REACTIONS (4)
  - INTENTIONAL OVERDOSE [None]
  - SUICIDE ATTEMPT [None]
  - HYPOGLYCAEMIC COMA [None]
  - RETROGRADE AMNESIA [None]
